FAERS Safety Report 8175276-8 (Version None)
Quarter: 2012Q1

REPORT INFORMATION
  Report Type: 
  Country: None (occurrence: None)
  Receive Date: 20120229
  Receipt Date: 20120202
  Transmission Date: 20120608
  Serious: Yes (Hospitalization, Other)
  Sender: FDA-Public Use
  Company Number: CHPA2012US003850

PATIENT
  Age: 59 Year
  Sex: Female

DRUGS (3)
  1. FLEXERIL [Concomitant]
  2. ANTIHYPERTENSIVES [Concomitant]
  3. EXCEDRIN (MIGRAINE) [Suspect]
     Indication: HEADACHE
     Dosage: 6 DF, QD
     Route: 048

REACTIONS (7)
  - SYSTEMIC LUPUS ERYTHEMATOSUS [None]
  - THERAPEUTIC RESPONSE UNEXPECTED [None]
  - FIBROMYALGIA [None]
  - REBOUND EFFECT [None]
  - NERVE INJURY [None]
  - OVERDOSE [None]
  - OSTEOPOROSIS [None]
